FAERS Safety Report 17766936 (Version 2)
Quarter: 2020Q2

REPORT INFORMATION
  Report Type: Spontaneous
  Country: US (occurrence: US)
  Receive Date: 20200511
  Receipt Date: 20200611
  Transmission Date: 20200714
  Serious: Yes (Other)
  Sender: FDA-Public Use
  Company Number: US-PFIZER INC-2020187499

PATIENT
  Age: 50 Year
  Sex: Male

DRUGS (1)
  1. XELJANZ [Suspect]
     Active Substance: TOFACITINIB CITRATE
     Indication: COLITIS ULCERATIVE
     Dosage: 10 MG, 2X/DAY
     Route: 048
     Dates: start: 201911

REACTIONS (15)
  - Decreased appetite [Recovering/Resolving]
  - Increased tendency to bruise [Unknown]
  - Mood altered [Unknown]
  - Product dose omission [Unknown]
  - Condition aggravated [Unknown]
  - Fatigue [Recovering/Resolving]
  - Skin discolouration [Unknown]
  - Skin texture abnormal [Unknown]
  - Weight decreased [Recovering/Resolving]
  - Anger [Unknown]
  - Haemorrhage [Recovering/Resolving]
  - Haematochezia [Unknown]
  - Muscle spasms [Recovering/Resolving]
  - Depressed mood [Recovering/Resolving]
  - Memory impairment [Unknown]
